FAERS Safety Report 26114790 (Version 2)
Quarter: 2025Q4

REPORT INFORMATION
  Report Type: Report from Study
  Country: US (occurrence: US)
  Receive Date: 20251203
  Receipt Date: 20251228
  Transmission Date: 20260117
  Serious: No
  Sender: JOHNSON AND JOHNSON
  Company Number: US-JNJFOC-20251163148

PATIENT
  Sex: Female

DRUGS (3)
  1. GUSELKUMAB [Suspect]
     Active Substance: GUSELKUMAB
     Indication: Psoriatic arthropathy
     Route: 058
  2. MOUNJARO 2.5 MG/0.5 PEN INJCTR [Concomitant]
     Indication: Product used for unknown indication
     Dosage: 2.5 MG/0.5 PEN INJCTR
  3. PREDNISONE [Concomitant]
     Active Substance: PREDNISONE
     Indication: Product used for unknown indication

REACTIONS (5)
  - Device deployment issue [Unknown]
  - Injection site pain [Unknown]
  - Gait disturbance [Unknown]
  - Injection site reaction [Unknown]
  - Arthralgia [Unknown]
